FAERS Safety Report 5793611-2 (Version None)
Quarter: 2008Q2

REPORT INFORMATION
  Report Type: 
  Country: None (occurrence: None)
  Receive Date: 20080627
  Receipt Date: 20080623
  Transmission Date: 20081010
  Serious: Yes (Death)
  Sender: FDA-Public Use
  Company Number: NO-ASTRAZENECA-2008SE03176

PATIENT
  Age: 23095 Day
  Sex: Male

DRUGS (10)
  1. BUPIVACAINE [Suspect]
     Indication: ANAESTHESIA
     Dosage: 3 ML + 6 ML OF 0.25% BUPIVACAINE
     Route: 008
     Dates: start: 20080109, end: 20080109
  2. PROPOFOL [Suspect]
     Indication: ANAESTHESIA
     Route: 042
     Dates: start: 20080109, end: 20080109
  3. FENTANYL [Suspect]
     Indication: ANAESTHESIA
     Route: 042
     Dates: start: 20080109, end: 20080109
  4. VECURONIUM BROMIDE [Suspect]
     Indication: ANAESTHESIA
     Route: 042
     Dates: start: 20080109, end: 20080109
  5. ZOLADEX [Concomitant]
     Indication: PROSTATE CANCER
     Route: 058
     Dates: start: 20070101
  6. CASODEX [Concomitant]
     Indication: PROSTATE CANCER
     Route: 048
     Dates: start: 20070101
  7. SELO-ZOK [Concomitant]
     Indication: HYPERTENSION
     Dosage: NOT GIVEN ON DAY OF ANESTHESIA
     Route: 048
     Dates: end: 20080108
  8. ATACAND [Concomitant]
     Indication: ANGINA PECTORIS
     Route: 048
  9. LIDOCAINE [Concomitant]
  10. OXAZEPAM [Concomitant]

REACTIONS (1)
  - HYPERSENSITIVITY [None]
